FAERS Safety Report 8840619 (Version 1)
Quarter: 2012Q4

REPORT INFORMATION
  Report Type: 
  Country: US (occurrence: US)
  Receive Date: 20121015
  Receipt Date: 20121015
  Transmission Date: 20130627
  Serious: Yes (Death, Life-Threatening, Hospitalization)
  Sender: FDA-Public Use
  Company Number: US-B.I. PHARMACEUTICALS,INC./RIDGEFIELD-2012-EU-05073GD

PATIENT
  Age: 85 Year
  Sex: Male
  Weight: 90.8 kg

DRUGS (7)
  1. DABIGATRAN ETEXILATE [Suspect]
     Indication: CEREBROVASCULAR ACCIDENT PROPHYLAXIS
     Dosage: 300 mg
     Route: 048
  2. DABIGATRAN ETEXILATE [Suspect]
     Indication: ATRIAL FIBRILLATION
  3. ASPIRIN [Suspect]
     Dosage: 325 mg
  4. METOPROLOL TARTRATE [Concomitant]
     Dosage: 100 mg
  5. SIMVASTATIN [Concomitant]
     Dosage: 80 mg
  6. LISINOPRIL [Concomitant]
     Dosage: 40 mg
  7. FUROSEMIDE [Concomitant]
     Dosage: 20 mg

REACTIONS (17)
  - Multi-organ failure [Fatal]
  - Unresponsive to stimuli [Unknown]
  - Shock haemorrhagic [Unknown]
  - Upper gastrointestinal haemorrhage [Unknown]
  - Coagulopathy [Unknown]
  - Acute hepatic failure [Unknown]
  - Renal failure acute [Unknown]
  - Anaemia [Unknown]
  - Hypotension [Unknown]
  - Tachycardia [Unknown]
  - Contusion [Unknown]
  - Ecchymosis [Unknown]
  - Oedema [Unknown]
  - Asthenia [Unknown]
  - Malaise [Unknown]
  - Dyspnoea [Unknown]
  - Melaena [Unknown]
